FAERS Safety Report 17169028 (Version 1)
Quarter: 2019Q4

REPORT INFORMATION
  Report Type: Spontaneous
  Country: US (occurrence: US)
  Receive Date: 20191126
  Receipt Date: 20191126
  Transmission Date: 20200122
  Serious: Yes (Other)
  Sender: FDA-Public Use
  Company Number: None

PATIENT
  Age: 44 Year
  Sex: Female
  Weight: 351.53 kg

DRUGS (2)
  1. MORPHINE ER 15MG [Suspect]
     Active Substance: MORPHINE
     Indication: ARTHRALGIA
     Route: 048
     Dates: start: 20190215, end: 20190513
  2. MORPHINE ER 15MG [Suspect]
     Active Substance: MORPHINE
     Indication: INTERVERTEBRAL DISC DISORDER
     Route: 048
     Dates: start: 20190215, end: 20190513

REACTIONS (1)
  - Eye swelling [None]

NARRATIVE: CASE EVENT DATE: 20190512
